FAERS Safety Report 14849570 (Version 2)
Quarter: 2018Q2

REPORT INFORMATION
  Report Type: Spontaneous
  Country: AT (occurrence: AT)
  Receive Date: 20180504
  Receipt Date: 20180511
  Transmission Date: 20180711
  Serious: Yes (Other)
  Sender: FDA-Public Use
  Company Number: AT-ROCHE-2115463

PATIENT
  Sex: Female
  Weight: 130 kg

DRUGS (10)
  1. COTELLIC [Suspect]
     Active Substance: COBIMETINIB
     Indication: METASTATIC MALIGNANT MELANOMA
     Dosage: 3 TABLETS ONCE DAILY
     Route: 065
  2. THYREX [Concomitant]
     Active Substance: LEVOTHYROXINE SODIUM
     Route: 065
  3. LOVENOX [Concomitant]
     Active Substance: ENOXAPARIN SODIUM
     Route: 065
  4. METFORMIN [Concomitant]
     Active Substance: METFORMIN HYDROCHLORIDE
     Dosage: 2X1/2 TABLET
     Route: 065
  5. PANTOLOC [Concomitant]
     Active Substance: PANTOPRAZOLE SODIUM
     Route: 065
  6. ZELBORAF [Suspect]
     Active Substance: VEMURAFENIB
     Indication: METASTATIC MALIGNANT MELANOMA
     Dosage: 4 TABLETS BID
     Route: 065
  7. KEPPRA [Concomitant]
     Active Substance: LEVETIRACETAM
     Route: 065
  8. URSOFALK [Concomitant]
     Active Substance: URSODIOL
     Dosage: 0-0-1
     Route: 065
  9. CONCOR PLUS [Concomitant]
     Active Substance: BISOPROLOL FUMARATE\HYDROCHLOROTHIAZIDE
     Dosage: DOSE 5/12.5 MG?0-1/2-0
     Route: 065
  10. FORTECORTIN [Concomitant]
     Active Substance: DEXAMETHASONE
     Route: 065

REACTIONS (3)
  - Haemorrhage subcutaneous [Recovering/Resolving]
  - Haemoglobin decreased [Recovering/Resolving]
  - Extravasation blood [Recovering/Resolving]
